FAERS Safety Report 13565106 (Version 1)
Quarter: 2017Q2

REPORT INFORMATION
  Report Type: Spontaneous
  Country: IT (occurrence: IT)
  Receive Date: 20170519
  Receipt Date: 20170519
  Transmission Date: 20170830
  Serious: Yes (Other)
  Sender: FDA-Public Use
  Company Number: IT-INDIVIOR LIMITED-INDV-101899-2017

PATIENT
  Sex: Male

DRUGS (1)
  1. SUBOXONE [Suspect]
     Active Substance: BUPRENORPHINE HYDROCHLORIDE\NALOXONE HYDROCHLORIDE
     Indication: PRODUCT USED FOR UNKNOWN INDICATION
     Dosage: 10MG, UNK BY GRINDING
     Route: 060

REACTIONS (7)
  - Drug withdrawal syndrome [Unknown]
  - Diarrhoea [Unknown]
  - Suicidal ideation [Unknown]
  - Feeling abnormal [Unknown]
  - Product preparation error [Unknown]
  - Back pain [Unknown]
  - Head discomfort [Unknown]
